FAERS Safety Report 16995244 (Version 1)
Quarter: 2019Q4

REPORT INFORMATION
  Report Type: Report from Study
  Country: US (occurrence: US)
  Receive Date: 20191105
  Receipt Date: 20191105
  Transmission Date: 20200122
  Serious: Yes (Other)
  Sender: FDA-Public Use
  Company Number: PHHY2016US099149

PATIENT
  Age: 22 Year
  Sex: Female

DRUGS (1)
  1. GILENYA [Suspect]
     Active Substance: FINGOLIMOD HYDROCHLORIDE
     Indication: MULTIPLE SCLEROSIS
     Dosage: UNK, QD
     Route: 048

REACTIONS (16)
  - Urinary tract infection [Recovered/Resolved]
  - Haemangioma of skin [Unknown]
  - Red blood cell count increased [Unknown]
  - Mean cell haemoglobin decreased [Unknown]
  - Red cell distribution width increased [Unknown]
  - Monocyte count increased [Unknown]
  - Lymphocyte count decreased [Unknown]
  - Kidney infection [Recovered/Resolved]
  - Mean cell volume decreased [Unknown]
  - White blood cell count decreased [Unknown]
  - Facial spasm [Unknown]
  - Eosinophil count increased [Unknown]
  - Melanocytic naevus [Unknown]
  - Lentigo [Unknown]
  - Vitamin D deficiency [Unknown]
  - Vision blurred [Unknown]

NARRATIVE: CASE EVENT DATE: 20160610
